FAERS Safety Report 7162311-9 (Version None)
Quarter: 2010Q4

REPORT INFORMATION
  Report Type: 
  Country: None (occurrence: None)
  Receive Date: 20101201
  Receipt Date: 20101117
  Transmission Date: 20110411
  Serious: Yes (Hospitalization, Other)
  Sender: FDA-Public Use
  Company Number: 8028111

PATIENT
  Sex: Female

DRUGS (5)
  1. CIMZIA [Suspect]
     Indication: RHEUMATOID ARTHRITIS
     Dosage: (400 MG, DOSE FREQ.: ONCE MONTHLY SUBCUTANEOUS)
     Route: 058
     Dates: start: 20030314, end: 20030801
  2. CIMZIA [Suspect]
     Indication: RHEUMATOID ARTHRITIS
     Dosage: (400 MG, DOSE FREQ.: ONCE MONTHLY SUBCUTANEOUS)
     Route: 058
     Dates: start: 20030828
  3. INDOMETHACIN [Concomitant]
  4. ESOMEPRAZOLE [Concomitant]
  5. DEPO PROVERA /00115201/ [Concomitant]

REACTIONS (11)
  - ABDOMINAL DISCOMFORT [None]
  - BODY TEMPERATURE INCREASED [None]
  - CONSTIPATION [None]
  - DIVERTICULITIS [None]
  - FATIGUE [None]
  - INFECTION [None]
  - MUSCLE SPASMS [None]
  - NAUSEA [None]
  - NEUTROPHIL COUNT INCREASED [None]
  - PAIN [None]
  - URINARY TRACT INFECTION [None]
